FAERS Safety Report 7597621-4 (Version None)
Quarter: 2011Q3

REPORT INFORMATION
  Report Type: 
  Country: None (occurrence: None)
  Receive Date: 20110708
  Receipt Date: 20110706
  Transmission Date: 20111222
  Serious: Yes (Death)
  Sender: FDA-Public Use
  Company Number: US-ABBOTT-11P-163-0836586-00

PATIENT
  Sex: Male
  Weight: 108.05 kg

DRUGS (15)
  1. FLOMAX [Concomitant]
     Indication: PROSTATOMEGALY
  2. MIRAPEX [Concomitant]
     Indication: RESTLESS LEGS SYNDROME
  3. GLIMPIRIDE [Concomitant]
     Indication: DIABETES MELLITUS
  4. POTASSIUM CHLORIDE [Concomitant]
     Indication: PRODUCT USED FOR UNKNOWN INDICATION
  5. FERROUS SULFATE TAB [Concomitant]
     Indication: PRODUCT USED FOR UNKNOWN INDICATION
  6. ZOLOFT [Concomitant]
     Indication: AGGRESSION
  7. LASIX [Concomitant]
     Indication: CARDIAC FAILURE CONGESTIVE
  8. CALCIUM CARBONATE [Concomitant]
     Indication: PRODUCT USED FOR UNKNOWN INDICATION
  9. HUMIRA [Suspect]
     Indication: RHEUMATOID ARTHRITIS
     Dates: start: 20060101, end: 20110622
  10. ZOCOR [Concomitant]
     Indication: BLOOD CHOLESTEROL INCREASED
  11. COREG [Concomitant]
     Indication: HYPERTENSION
  12. MULTI-VITAMIN [Concomitant]
     Indication: PRODUCT USED FOR UNKNOWN INDICATION
  13. ASPIRIN [Concomitant]
     Indication: PRODUCT USED FOR UNKNOWN INDICATION
  14. PRILOSEC [Concomitant]
     Indication: GASTRIC DISORDER
  15. TRICOR [Concomitant]
     Indication: BLOOD CHOLESTEROL INCREASED

REACTIONS (1)
  - RESPIRATORY FAILURE [None]
